FAERS Safety Report 5482163-2 (Version None)
Quarter: 2007Q4

REPORT INFORMATION
  Report Type: 
  Country: None (occurrence: None)
  Receive Date: 20071005
  Receipt Date: 20070921
  Transmission Date: 20080405
  Serious: No
  Sender: FDA-Public Use
  Company Number: KADN20070086

PATIENT
  Age: 36 Year
  Sex: Female

DRUGS (3)
  1. MORPHINE [Suspect]
     Indication: PAIN
     Dosage: 10 MG, ONCE, IM
     Route: 030
  2. MAGNESIUM SULFATE [Suspect]
     Dosage: INTRAVENOUS
     Route: 042
  3. LABETALOL HYDROCHLORIDE [Concomitant]

REACTIONS (10)
  - BLOOD PRESSURE INCREASED [None]
  - DRUG EXPOSURE DURING PREGNANCY [None]
  - DRUG INTERACTION [None]
  - OVERDOSE [None]
  - PROTEIN URINE PRESENT [None]
  - RESPIRATORY ACIDOSIS [None]
  - RESPIRATORY DEPRESSION [None]
  - RESPIRATORY RATE DECREASED [None]
  - SOMNOLENCE [None]
  - STUPOR [None]
